FAERS Safety Report 12867172 (Version 1)
Quarter: 2016Q4

REPORT INFORMATION
  Report Type: Spontaneous
  Country: US (occurrence: US)
  Receive Date: 20161020
  Receipt Date: 20161020
  Transmission Date: 20170207
  Serious: No
  Sender: FDA-Public Use
  Company Number: US-JAZZ-2016-US-014803

PATIENT
  Sex: Male

DRUGS (32)
  1. TESTOSTERONE. [Concomitant]
     Active Substance: TESTOSTERONE
  2. LAMICTAL [Concomitant]
     Active Substance: LAMOTRIGINE
  3. RESTORIL [Concomitant]
     Active Substance: TEMAZEPAM
  4. ATROVENT [Concomitant]
     Active Substance: IPRATROPIUM BROMIDE
  5. MULTIVITAMIN WITH MINERALS [Concomitant]
     Active Substance: MINERALS\VITAMINS
  6. XYREM [Suspect]
     Active Substance: SODIUM OXYBATE
     Indication: INSOMNIA
     Dosage: 2.25 G, BID
     Route: 048
     Dates: start: 200801, end: 200801
  7. 5-HTP [Concomitant]
     Active Substance: OXITRIPTAN
  8. BRINTELLIX [Concomitant]
     Active Substance: VORTIOXETINE HYDROBROMIDE
  9. TRAZODONE [Concomitant]
     Active Substance: TRAZODONE HYDROCHLORIDE
  10. VITAMIN D3 [Concomitant]
     Active Substance: CHOLECALCIFEROL
  11. XYREM [Suspect]
     Active Substance: SODIUM OXYBATE
     Dosage: DOSE ADJUSTMENTS
     Route: 048
     Dates: start: 200801, end: 201405
  12. CURCUMIN [Concomitant]
     Active Substance: CURCUMIN
  13. VITAMIN E [Concomitant]
     Active Substance: .ALPHA.-TOCOPHEROL
  14. ATENOLOL. [Concomitant]
     Active Substance: ATENOLOL
  15. REMERON [Concomitant]
     Active Substance: MIRTAZAPINE
  16. VYVANSE [Concomitant]
     Active Substance: LISDEXAMFETAMINE DIMESYLATE
  17. BACTRIM [Concomitant]
     Active Substance: SULFAMETHOXAZOLE\TRIMETHOPRIM
  18. CYPROHEPTADINE. [Concomitant]
     Active Substance: CYPROHEPTADINE
  19. XYREM [Suspect]
     Active Substance: SODIUM OXYBATE
     Dosage: 4.5 G, BID
     Dates: start: 201405
  20. FISH OIL [Concomitant]
     Active Substance: FISH OIL
  21. BYSTOLIC [Concomitant]
     Active Substance: NEBIVOLOL HYDROCHLORIDE
  22. VITAMIN B12 [Concomitant]
     Active Substance: CYANOCOBALAMIN
  23. ADDERALL [Concomitant]
     Active Substance: AMPHETAMINE ASPARTATE\AMPHETAMINE SULFATE\DEXTROAMPHETAMINE SACCHARATE\DEXTROAMPHETAMINE SULFATE
  24. NEXIUM [Concomitant]
     Active Substance: ESOMEPRAZOLE MAGNESIUM
  25. UROXATRAL [Concomitant]
     Active Substance: ALFUZOSIN HYDROCHLORIDE
  26. DHEA [Suspect]
     Active Substance: PRASTERONE
     Indication: PRODUCT USED FOR UNKNOWN INDICATION
  27. MAGNESIUM CITRATE. [Concomitant]
     Active Substance: MAGNESIUM CITRATE
  28. COENZYME Q10 [Concomitant]
     Active Substance: UBIDECARENONE
  29. VITAMIN B COMPLEX [Concomitant]
     Active Substance: CYANOCOBALAMIN\DEXPANTHENOL\NIACINAMIDE\PYRIDOXINE HYDROCHLORIDE\RIBOFLAVIN 5^-PHOSPHATE SODIUM\THIAMINE HYDROCHLORIDE\VITAMIN B COMPLEX
  30. SEROQUEL [Concomitant]
     Active Substance: QUETIAPINE FUMARATE
  31. VINPOCETINE [Concomitant]
     Active Substance: VINPOCETINE
  32. LEXAPRO [Concomitant]
     Active Substance: ESCITALOPRAM OXALATE

REACTIONS (1)
  - Sleep disorder [Unknown]
